FAERS Safety Report 18758694 (Version 1)
Quarter: 2021Q1

REPORT INFORMATION
  Report Type: Spontaneous
  Country: US (occurrence: US)
  Receive Date: 20210119
  Receipt Date: 20210119
  Transmission Date: 20210419
  Serious: Yes (Death)
  Sender: FDA-Public Use
  Company Number: US-VIFOR (INTERNATIONAL) INC.-VIT-2021-00668

PATIENT
  Age: 95 Year
  Sex: Female

DRUGS (12)
  1. GABAPENTIN. [Concomitant]
     Active Substance: GABAPENTIN
  2. NOVOLOG [Concomitant]
     Active Substance: INSULIN ASPART
  3. VELTASSA [Suspect]
     Active Substance: PATIROMER
     Indication: HYPERKALAEMIA
     Route: 048
     Dates: start: 20191205
  4. ALLOPURINOL. [Concomitant]
     Active Substance: ALLOPURINOL
  5. ISOSORBIDE. [Concomitant]
     Active Substance: ISOSORBIDE
  6. METOPROLOL TAR [Concomitant]
     Active Substance: METOPROLOL TARTRATE
  7. NIFEDIPINE. [Concomitant]
     Active Substance: NIFEDIPINE
  8. CETRIZINE [Concomitant]
     Active Substance: CETIRIZINE HYDROCHLORIDE
  9. OMEPRAZOLE. [Concomitant]
     Active Substance: OMEPRAZOLE
  10. ALBUTEROL. [Concomitant]
     Active Substance: ALBUTEROL
  11. CLOPIDOGREL [Concomitant]
     Active Substance: CLOPIDOGREL BISULFATE
  12. HYDRALAZINE [Concomitant]
     Active Substance: HYDRALAZINE HYDROCHLORIDE

REACTIONS (1)
  - Death [Fatal]
